FAERS Safety Report 20870855 (Version 1)
Quarter: 2022Q2

REPORT INFORMATION
  Report Type: Report from Study
  Country: DO (occurrence: DO)
  Receive Date: 20220525
  Receipt Date: 20220525
  Transmission Date: 20220721
  Serious: Yes (Other)
  Sender: FDA-Public Use
  Company Number: DO-ABBVIE-22K-279-4409342-00

PATIENT
  Sex: Female
  Weight: 64.468 kg

DRUGS (1)
  1. HUMIRA [Suspect]
     Active Substance: ADALIMUMAB
     Indication: Rheumatoid arthritis
     Route: 058
     Dates: start: 20140414, end: 20220506

REACTIONS (7)
  - Intervertebral disc protrusion [Recovering/Resolving]
  - Osteoporosis [Recovering/Resolving]
  - Osteopenia [Recovering/Resolving]
  - Osteoarthritis [Recovering/Resolving]
  - Insomnia [Recovering/Resolving]
  - Pain [Recovering/Resolving]
  - Bone disorder [Recovering/Resolving]

NARRATIVE: CASE EVENT DATE: 20190101
